FAERS Safety Report 7133893-8 (Version None)
Quarter: 2010Q4

REPORT INFORMATION
  Report Type: 
  Country: None (occurrence: None)
  Receive Date: 20101203
  Receipt Date: 20101111
  Transmission Date: 20110411
  Serious: Yes (Other)
  Sender: FDA-Public Use
  Company Number: US-BAYER-201027578NA

PATIENT

DRUGS (8)
  1. YAZ [Suspect]
  2. YASMIN [Suspect]
     Route: 048
     Dates: start: 20030101, end: 20050101
  3. NSAIDS [Concomitant]
     Dates: start: 20000101, end: 20100101
  4. TEGRETOL [Concomitant]
     Dates: start: 20070101
  5. EPITOL [Concomitant]
     Indication: BIPOLAR DISORDER
     Dates: start: 20080101
  6. PROZAC [Concomitant]
     Indication: BIPOLAR DISORDER
     Dates: start: 20080101
  7. TRAMADOL [Concomitant]
     Dates: start: 20080101
  8. TREXIMOT [Concomitant]
     Indication: MIGRAINE
     Dates: start: 20080101

REACTIONS (1)
  - CHOLECYSTECTOMY [None]
